FAERS Safety Report 7477665-3 (Version None)
Quarter: 2011Q2

REPORT INFORMATION
  Report Type: 
  Country: None (occurrence: None)
  Receive Date: 20110513
  Receipt Date: 20110405
  Transmission Date: 20111010
  Serious: Yes (Hospitalization, Other)
  Sender: FDA-Public Use
  Company Number: US-BAYER-201041896NA

PATIENT
  Age: 25 Year
  Sex: Female
  Weight: 73 kg

DRUGS (3)
  1. YASMIN [Suspect]
     Indication: PRODUCT USED FOR UNKNOWN INDICATION
     Route: 048
     Dates: start: 20040301, end: 20080715
  2. DROSPIRENONE AND ETHINYL ESTRADIOL [Suspect]
     Indication: PRODUCT USED FOR UNKNOWN INDICATION
     Route: 048
     Dates: start: 20080701
  3. YAZ [Suspect]

REACTIONS (4)
  - ABDOMINAL PAIN [None]
  - GALLBLADDER POLYP [None]
  - GALLBLADDER DISORDER [None]
  - CHOLECYSTITIS [None]
